FAERS Safety Report 8065911-7 (Version None)
Quarter: 2012Q1

REPORT INFORMATION
  Report Type: 
  Country: None (occurrence: None)
  Receive Date: 20120124
  Receipt Date: 20120112
  Transmission Date: 20120608
  Serious: Yes (Hospitalization, Other)
  Sender: FDA-Public Use
  Company Number: CA-ELI_LILLY_AND_COMPANY-CA201112003836

PATIENT
  Age: 28 Year
  Sex: Male

DRUGS (10)
  1. CLONAZEPAM [Concomitant]
     Dosage: 0.5 MG, BID
     Route: 048
     Dates: start: 20110831
  2. ESCITALOPRAM [Concomitant]
     Dosage: 20 MG, QD
     Route: 048
     Dates: start: 20110831
  3. OLANZAPINE [Suspect]
     Dosage: 20 MG, QD
     Route: 048
     Dates: start: 20110831
  4. OLANZAPINE [Suspect]
     Dosage: 2.5 MG, QD
  5. CLONAZEPAM [Concomitant]
     Dosage: 1 MG, QD
  6. ESCITALOPRAM [Concomitant]
     Dosage: 10 MG, QOD
  7. OLANZAPINE [Suspect]
     Dosage: 2.5 MG, QOD
  8. OLANZAPINE [Suspect]
     Dosage: 5 MG, QD
  9. CLONAZEPAM [Concomitant]
     Dosage: 1 MG, QOD
  10. ESCITALOPRAM [Concomitant]
     Dosage: 10 MG, QD

REACTIONS (6)
  - INTENTIONAL DRUG MISUSE [None]
  - ORAL PAIN [None]
  - DEPRESSION [None]
  - OBSESSIVE-COMPULSIVE DISORDER [None]
  - SUICIDAL IDEATION [None]
  - PSYCHOTIC DISORDER [None]
